FAERS Safety Report 4782611-7 (Version None)
Quarter: 2005Q3

REPORT INFORMATION
  Report Type: 
  Country: None (occurrence: None)
  Receive Date: 20050929
  Receipt Date: 20050425
  Transmission Date: 20060218
  Serious: No
  Sender: FDA-Public Use
  Company Number: 403130

PATIENT
  Age: 78 Year
  Sex: Female

DRUGS (5)
  1. CARVEDILOL [Suspect]
     Dosage: 3.125MG TWICE PER DAY
     Route: 048
     Dates: start: 20020301
  2. VASOTEC [Concomitant]
  3. ASPIRIN [Concomitant]
  4. MULTI-VITAMINS [Concomitant]
  5. WATER PILL [Concomitant]

REACTIONS (5)
  - DIFFICULTY IN WALKING [None]
  - LIGAMENT DISORDER [None]
  - MUSCULAR WEAKNESS [None]
  - MYALGIA [None]
  - TENDON DISORDER [None]
